FAERS Safety Report 12972171 (Version 3)
Quarter: 2016Q4

REPORT INFORMATION
  Report Type: Spontaneous
  Country: US (occurrence: US)
  Receive Date: 20161124
  Receipt Date: 20161205
  Transmission Date: 20170207
  Serious: No
  Sender: FDA-Public Use
  Company Number: US-BEH-2016075488

PATIENT
  Age: 74 Year
  Sex: Female

DRUGS (3)
  1. HIZENTRA [Suspect]
     Active Substance: HUMAN IMMUNOGLOBULIN G
     Dosage: UNK
     Route: 065
     Dates: start: 20161118, end: 20161118
  2. HIZENTRA [Suspect]
     Active Substance: HUMAN IMMUNOGLOBULIN G
     Dosage: UNK
     Route: 065
     Dates: start: 20161110, end: 20161110
  3. HIZENTRA [Suspect]
     Active Substance: HUMAN IMMUNOGLOBULIN G
     Indication: PRODUCT USED FOR UNKNOWN INDICATION
     Dosage: UNK
     Route: 065
     Dates: start: 20161103, end: 20161103

REACTIONS (6)
  - Musculoskeletal stiffness [Unknown]
  - Back pain [Recovered/Resolved]
  - Cough [Unknown]
  - Pain in extremity [Unknown]
  - Acne [Recovering/Resolving]
  - Euphoric mood [Unknown]

NARRATIVE: CASE EVENT DATE: 20161110
